FAERS Safety Report 9630003 (Version 2)
Quarter: 2013Q4

REPORT INFORMATION
  Report Type: Report from Study
  Country: BR (occurrence: BR)
  Receive Date: 20131017
  Receipt Date: 20131017
  Transmission Date: 20140711
  Serious: Yes (Life-Threatening, Other)
  Sender: FDA-Public Use
  Company Number: PHHY2013BR095953

PATIENT
  Age: 62 Year
  Sex: Female
  Weight: 60 kg

DRUGS (6)
  1. GILENYA [Suspect]
     Indication: MULTIPLE SCLEROSIS
     Dosage: 1 DF, QD
     Route: 048
     Dates: start: 20130730
  2. GILENYA [Suspect]
     Route: 048
     Dates: start: 20130828
  3. VIMOVO [Suspect]
     Indication: LIMB INJURY
     Dosage: 1 DF, Q12H
     Dates: start: 20130819, end: 20130821
  4. TOPIRAMATE [Concomitant]
     Dosage: UNK UKN, UNK
  5. SIMVASTATIN [Concomitant]
     Indication: BLOOD CHOLESTEROL INCREASED
  6. NEBILET [Concomitant]
     Indication: BLOOD PRESSURE INCREASED

REACTIONS (8)
  - Feeling abnormal [Unknown]
  - Cerebrovascular accident [Unknown]
  - Toxicity to various agents [Unknown]
  - Confusional state [Recovering/Resolving]
  - Limb injury [Recovering/Resolving]
  - Liver disorder [Recovering/Resolving]
  - Dyspepsia [Recovering/Resolving]
  - Malaise [Unknown]
